FAERS Safety Report 21346898 (Version 1)
Quarter: 2022Q3

REPORT INFORMATION
  Report Type: Spontaneous
  Country: US (occurrence: None)
  Receive Date: 20220916
  Receipt Date: 20220916
  Transmission Date: 20221027
  Serious: Yes (Hospitalization)
  Sender: FDA-Public Use
  Company Number: None

PATIENT
  Age: 40 Year
  Sex: Male
  Weight: 92 kg

DRUGS (1)
  1. EMPAGLIFLOZIN [Suspect]
     Active Substance: EMPAGLIFLOZIN
     Indication: Diabetes mellitus
     Dosage: FREQUENCY : DAILY;?
     Route: 048
     Dates: start: 20220518, end: 20220613

REACTIONS (6)
  - Nausea [None]
  - Vomiting [None]
  - Diabetic ketoacidosis [None]
  - Gastrointestinal haemorrhage [None]
  - Haematemesis [None]
  - Hyperglycaemia [None]

NARRATIVE: CASE EVENT DATE: 20220612
